FAERS Safety Report 18643324 (Version 1)
Quarter: 2020Q4

REPORT INFORMATION
  Report Type: Spontaneous
  Country: KR (occurrence: KR)
  Receive Date: 20201221
  Receipt Date: 20201221
  Transmission Date: 20210114
  Serious: Yes (Other)
  Sender: FDA-Public Use
  Company Number: KR-CELGENEUS-KOR-20201205598

PATIENT
  Age: 49 Year
  Sex: Male
  Weight: 60 kg

DRUGS (1)
  1. AZACITIDINE. [Suspect]
     Active Substance: AZACITIDINE
     Indication: MYELODYSPLASTIC SYNDROME
     Dosage: 90.5 MILLIGRAM
     Route: 058
     Dates: start: 20160518, end: 20160518

REACTIONS (3)
  - Constipation [Recovered/Resolved]
  - Pulmonary oedema [Recovered/Resolved]
  - Headache [Recovered/Resolved]

NARRATIVE: CASE EVENT DATE: 20160518
